FAERS Safety Report 8549877-9 (Version None)
Quarter: 2012Q3

REPORT INFORMATION
  Report Type: 
  Country: None (occurrence: None)
  Receive Date: 20120730
  Receipt Date: 20111101
  Transmission Date: 20120928
  Serious: No
  Sender: FDA-Public Use
  Company Number: US-GLAXOSMITHKLINE-A0951552A

PATIENT
  Age: 50 Year
  Sex: Female

DRUGS (9)
  1. CRESTOR [Concomitant]
  2. LEXAPRO [Concomitant]
  3. FENOFIBRATE [Concomitant]
  4. POTASSIUM CHLORIDE [Concomitant]
  5. SUMATRIPTAN SUCCINATE [Suspect]
     Indication: MIGRAINE
     Dosage: 50MG UNKNOWN
     Route: 048
     Dates: start: 20090401, end: 20090601
  6. CHLORTHALIDONE [Concomitant]
  7. SUMATRIPTAN SUCCINATE [Suspect]
     Route: 045
  8. M.V.I. [Concomitant]
  9. ZYRTEC [Concomitant]

REACTIONS (1)
  - DRUG INEFFECTIVE [None]
